FAERS Safety Report 9229097 (Version 1)
Quarter: 2013Q2

REPORT INFORMATION
  Report Type: Spontaneous
  Country: US (occurrence: US)
  Receive Date: 20130412
  Receipt Date: 20130412
  Transmission Date: 20140414
  Serious: No
  Sender: FDA-Public Use
  Company Number: US-ASTRAZENECA-2013SE21787

PATIENT
  Age: 48 Year
  Sex: Female
  Weight: 90.7 kg

DRUGS (6)
  1. SYMBICORT [Suspect]
     Indication: ASTHMA
     Dosage: 80/4.5, 2 PUFFS BID
     Route: 055
     Dates: start: 2009
  2. SYMBICORT [Suspect]
     Indication: EMPHYSEMA
     Dosage: 80/4.5, 2 PUFFS BID
     Route: 055
     Dates: start: 2009
  3. DUONEB [Concomitant]
     Indication: EMPHYSEMA
     Route: 055
  4. THEOPHYLLIN [Concomitant]
     Indication: EMPHYSEMA
     Route: 048
  5. THEOPHYLLIN [Concomitant]
     Indication: CHRONIC OBSTRUCTIVE PULMONARY DISEASE
     Route: 048
  6. TRAMADOL [Concomitant]
     Indication: FIBROMYALGIA
     Route: 048
     Dates: start: 2006

REACTIONS (6)
  - Influenza [Unknown]
  - Bronchitis [Unknown]
  - Pyrexia [Unknown]
  - Pain [Unknown]
  - Cough [Unknown]
  - Drug dose omission [Unknown]
